FAERS Safety Report 25166264 (Version 2)
Quarter: 2025Q2

REPORT INFORMATION
  Report Type: Spontaneous
  Country: US (occurrence: US)
  Receive Date: 20250407
  Receipt Date: 20250410
  Transmission Date: 20250716
  Serious: No
  Sender: ABBVIE
  Company Number: US-ABBVIE-6211364

PATIENT
  Sex: Male

DRUGS (1)
  1. LATISSE [Suspect]
     Active Substance: BIMATOPROST
     Indication: Growth of eyelashes
     Route: 061

REACTIONS (3)
  - Skin discolouration [Unknown]
  - Therapeutic product effect delayed [Unknown]
  - Liquid product physical issue [Unknown]
